FAERS Safety Report 9896401 (Version 1)
Quarter: 2014Q1

REPORT INFORMATION
  Report Type: Spontaneous
  Country: US (occurrence: US)
  Receive Date: 20140213
  Receipt Date: 20140213
  Transmission Date: 20141002
  Serious: No
  Sender: FDA-Public Use
  Company Number: US-BRISTOL-MYERS SQUIBB COMPANY-19813484

PATIENT
  Age: 57 Year
  Sex: Female

DRUGS (10)
  1. ABATACEPT SUBQ INJECTION 125MG/ML [Suspect]
     Route: 058
     Dates: start: 201308
  2. ATENOLOL [Concomitant]
     Dosage: TABS
  3. PLAQUENIL [Concomitant]
     Dosage: TABS
  4. OMEPRAZOLE [Concomitant]
     Dosage: TABS
  5. AMLODIPINE [Concomitant]
     Dosage: TABS
  6. PREDNISONE [Concomitant]
     Dosage: TABS
  7. TRAMADOL HCL [Concomitant]
     Dosage: TABS
  8. IBUPROFEN [Concomitant]
     Dosage: CAPS
  9. IRON [Concomitant]
     Dosage: 100 TAB
  10. CALCIUM [Concomitant]
     Dosage: +D TABS

REACTIONS (1)
  - Drug ineffective [Unknown]
